FAERS Safety Report 21855065 (Version 4)
Quarter: 2023Q1

REPORT INFORMATION
  Report Type: Spontaneous
  Country: US (occurrence: US)
  Receive Date: 20230112
  Receipt Date: 20230302
  Transmission Date: 20230417
  Serious: Yes (Other)
  Sender: FDA-Public Use
  Company Number: US-PFIZER INC-PV202300006395

PATIENT
  Age: 58 Year
  Sex: Male

DRUGS (2)
  1. INLYTA [Suspect]
     Active Substance: AXITINIB
     Dosage: 10 MG, DAILY
  2. INLYTA [Suspect]
     Active Substance: AXITINIB
     Dosage: 5 MG, 1X/DAY

REACTIONS (7)
  - Blood pressure systolic increased [Recovering/Resolving]
  - Off label use [Unknown]
  - Diarrhoea [Unknown]
  - Speech disorder [Unknown]
  - Vocal cord disorder [Unknown]
  - Gastric disorder [Unknown]
  - Pain in extremity [Unknown]
